FAERS Safety Report 14765316 (Version 1)
Quarter: 2018Q2

REPORT INFORMATION
  Report Type: Spontaneous
  Country: DK (occurrence: DK)
  Receive Date: 20180416
  Receipt Date: 20180416
  Transmission Date: 20180711
  Serious: Yes (Disabling)
  Sender: FDA-Public Use
  Company Number: DK-TEVA-2018-DK-881259

PATIENT
  Age: 72 Year
  Sex: Male

DRUGS (2)
  1. PRIMCILLIN [Concomitant]
     Active Substance: PENICILLIN V POTASSIUM
     Indication: STREPTOCOCCUS TEST POSITIVE
     Dosage: STYRKE: 800 MG.
     Route: 048
     Dates: start: 20160531, end: 201607
  2. METRONIDAZOLE ^ACTAVIS^ [Suspect]
     Active Substance: METRONIDAZOLE
     Indication: STREPTOCOCCUS TEST POSITIVE
     Dosage: STYRKE: 500 MG.
     Route: 048
     Dates: start: 20160506, end: 201607

REACTIONS (5)
  - Paraesthesia [Not Recovered/Not Resolved]
  - Polyneuropathy [Not Recovered/Not Resolved]
  - Gait disturbance [Not Recovered/Not Resolved]
  - Sensory loss [Not Recovered/Not Resolved]
  - Pain in extremity [Not Recovered/Not Resolved]

NARRATIVE: CASE EVENT DATE: 2016
